FAERS Safety Report 7349117-2 (Version None)
Quarter: 2011Q1

REPORT INFORMATION
  Report Type: 
  Country: None (occurrence: None)
  Receive Date: 20110314
  Receipt Date: 20110302
  Transmission Date: 20110831
  Serious: Yes (Hospitalization, Disabling)
  Sender: FDA-Public Use
  Company Number: JP-CELGENEUS-087-21880-10122826

PATIENT
  Age: 78 Year
  Sex: Male

DRUGS (28)
  1. NORVASC [Concomitant]
     Dosage: 5 MILLIGRAM
     Route: 048
     Dates: start: 20101001, end: 20110215
  2. FLUITRAN [Concomitant]
     Dosage: 1 MILLIGRAM
     Route: 048
     Dates: start: 20101007, end: 20110215
  3. ASPIRIN [Concomitant]
     Dosage: 100 MILLIGRAM
     Route: 048
     Dates: start: 20101007, end: 20110215
  4. CODEINE SULFATE [Concomitant]
     Indication: MULTIPLE MYELOMA
     Dosage: 40 MILLIGRAM
     Route: 048
     Dates: start: 20101007, end: 20110215
  5. LOXONIN [Concomitant]
     Dosage: 180 MILLIGRAM
     Route: 048
     Dates: start: 20101007, end: 20110215
  6. ZOMETA [Suspect]
     Indication: MULTIPLE MYELOMA
     Dosage: 4 MILLIGRAM
     Route: 041
     Dates: start: 20101019, end: 20101019
  7. ZOMETA [Suspect]
     Dosage: 4 MILLIGRAM
     Route: 041
     Dates: start: 20101116, end: 20101116
  8. DECADRON [Suspect]
     Indication: MULTIPLE MYELOMA
     Dosage: 10 MILLIGRAM
     Route: 048
     Dates: start: 20101005
  9. OMEPRAL [Concomitant]
     Dosage: 10 MILLIGRAM
     Route: 048
     Dates: start: 20101007, end: 20101115
  10. LENADEX [Suspect]
     Indication: MULTIPLE MYELOMA
     Dosage: 120 MILLIGRAM
     Route: 048
     Dates: start: 20101007, end: 20101026
  11. DEXAMETHASONE [Concomitant]
     Dosage: 1 MILLIGRAM
     Route: 048
     Dates: start: 20101226, end: 20101228
  12. PRORENAL [Concomitant]
     Dosage: 15 MILLIGRAM
     Route: 048
     Dates: start: 20101007, end: 20110215
  13. METHYCOBAL [Concomitant]
     Dosage: 1500 MILLIGRAM
     Route: 048
     Dates: start: 20101007, end: 20110215
  14. CLEANAL [Concomitant]
     Dosage: 1200 MILLIGRAM
     Route: 048
     Dates: start: 20101102, end: 20101115
  15. REVLIMID [Suspect]
     Indication: MULTIPLE MYELOMA
     Dosage: 10 MILLIGRAM
     Route: 048
     Dates: start: 20101007, end: 20101027
  16. DEXAMETHASONE [Concomitant]
     Indication: MULTIPLE MYELOMA
     Dosage: 8 MILLIGRAM
     Route: 048
     Dates: start: 20101208, end: 20101221
  17. DEXAMETHASONE [Concomitant]
     Dosage: 2 MILLIGRAM
     Route: 048
     Dates: start: 20101222, end: 20101225
  18. REVLIMID [Suspect]
     Dosage: 15 MILLIGRAM
     Route: 048
     Dates: start: 20101208, end: 20101228
  19. DIOVAN [Suspect]
     Dosage: 80 MILLIGRAM
     Route: 048
     Dates: start: 20101007, end: 20110215
  20. MYSLEE [Concomitant]
     Dosage: 5 MILLIGRAM
     Route: 048
     Dates: start: 20101007, end: 20110215
  21. GENTACIN [Concomitant]
     Dosage: .1 PERCENT
     Route: 061
     Dates: start: 20101102, end: 20101108
  22. ALLELOCK [Concomitant]
     Dosage: 3 MILLIGRAM
     Route: 048
     Dates: start: 20101007, end: 20101103
  23. ZOMETA [Suspect]
     Dosage: 4 MILLIGRAM
     Route: 041
     Dates: start: 20101207, end: 20101207
  24. ADOFEED [Concomitant]
     Dosage: 10X14 SHEET
     Route: 061
     Dates: start: 20101007, end: 20110215
  25. REVLIMID [Suspect]
     Dosage: 10 MILLIGRAM
     Route: 048
     Dates: start: 20101104, end: 20101124
  26. LENADEX [Suspect]
     Dosage: 120 MILLIGRAM
     Route: 048
     Dates: start: 20101104, end: 20101123
  27. GABAPEN [Concomitant]
     Dosage: 200 MILLIGRAM
     Route: 048
     Dates: start: 20101104, end: 20110215
  28. PURSENNID [Concomitant]
     Dosage: 24 MILLIGRAM
     Route: 048
     Dates: start: 20101104, end: 20110215

REACTIONS (6)
  - CELLULITIS [None]
  - OBESITY [None]
  - ENTEROCOLITIS [None]
  - HYPOTENSION [None]
  - HYPERKALAEMIA [None]
  - OSTEONECROSIS OF JAW [None]
